FAERS Safety Report 10017220 (Version 1)
Quarter: 2014Q1

REPORT INFORMATION
  Report Type: Spontaneous
  Country: US (occurrence: US)
  Receive Date: 20140318
  Receipt Date: 20140318
  Transmission Date: 20141002
  Serious: Yes (Other)
  Sender: FDA-Public Use
  Company Number: US-AMGEN-USASP2014017759

PATIENT
  Sex: Female
  Weight: 61.22 kg

DRUGS (2)
  1. PROLIA [Suspect]
     Indication: OSTEOPOROSIS POSTMENOPAUSAL
     Dosage: UNK
     Route: 065
  2. NEXIUM                             /01479302/ [Concomitant]
     Indication: GASTROOESOPHAGEAL REFLUX DISEASE

REACTIONS (7)
  - Respiratory tract infection [Unknown]
  - Mass [Unknown]
  - Skin disorder [Unknown]
  - Stomatitis [Unknown]
  - Procedural headache [Unknown]
  - Skin irritation [Unknown]
  - Gastrooesophageal reflux disease [Unknown]
